FAERS Safety Report 11569812 (Version 1)
Quarter: 2015Q3

REPORT INFORMATION
  Report Type: Spontaneous
  Country: US (occurrence: US)
  Receive Date: 20150929
  Receipt Date: 20150929
  Transmission Date: 20151125
  Serious: Yes (Hospitalization)
  Sender: FDA-Public Use
  Company Number: US-SA-2015SA145755

PATIENT
  Age: 58 Year
  Sex: Female

DRUGS (3)
  1. AUBAGIO [Suspect]
     Active Substance: TERIFLUNOMIDE
     Route: 065
     Dates: start: 2012
  2. AVAPRO [Concomitant]
     Active Substance: IRBESARTAN
  3. IBUPROFEN. [Concomitant]
     Active Substance: IBUPROFEN

REACTIONS (3)
  - Abdominal pain [Unknown]
  - Acute kidney injury [Unknown]
  - Hepatic cirrhosis [Unknown]
